FAERS Safety Report 7374447-8 (Version None)
Quarter: 2011Q1

REPORT INFORMATION
  Report Type: 
  Country: None (occurrence: None)
  Receive Date: 20110325
  Receipt Date: 20110316
  Transmission Date: 20110831
  Serious: Yes (Hospitalization)
  Sender: FDA-Public Use
  Company Number: PL-JNJFOC-20110306662

PATIENT
  Sex: Female
  Weight: 79 kg

DRUGS (1)
  1. CAELYX [Suspect]
     Indication: OVARIAN CANCER
     Route: 042

REACTIONS (4)
  - SWEAT GLAND DISORDER [None]
  - BACK PAIN [None]
  - ASTHENIA [None]
  - DYSPNOEA [None]
